FAERS Safety Report 20010293 (Version 1)
Quarter: 2021Q4

REPORT INFORMATION
  Report Type: Spontaneous
  Country: FR (occurrence: FR)
  Receive Date: 20211028
  Receipt Date: 20211028
  Transmission Date: 20220303
  Serious: Yes (Hospitalization)
  Sender: FDA-Public Use
  Company Number: None

PATIENT
  Age: 42 Year
  Sex: Female

DRUGS (2)
  1. ARIPIPRAZOLE [Interacting]
     Active Substance: ARIPIPRAZOLE
     Indication: Affective disorder
     Dosage: 30 MILLIGRAM
     Route: 048
     Dates: start: 20210515
  2. OLANZAPINE [Interacting]
     Active Substance: OLANZAPINE
     Indication: Affective disorder
     Dosage: 7.5 MILLIGRAM
     Route: 048
     Dates: start: 20210515

REACTIONS (2)
  - Condition aggravated [Recovered/Resolved]
  - Drug interaction [Unknown]

NARRATIVE: CASE EVENT DATE: 20210501
